FAERS Safety Report 10384517 (Version 1)
Quarter: 2014Q3

REPORT INFORMATION
  Report Type: Spontaneous
  Country: US (occurrence: AU)
  Receive Date: 20140814
  Receipt Date: 20140814
  Transmission Date: 20150326
  Serious: Yes (Hospitalization)
  Sender: FDA-Public Use
  Company Number: AU-FRI-1000069858

PATIENT
  Age: 28 Year
  Sex: Male

DRUGS (4)
  1. ADAPALENE+BENZOYL PEROXIDE [Concomitant]
  2. QUETIAPINE [Concomitant]
     Active Substance: QUETIAPINE
  3. ASENAPINE [Suspect]
     Active Substance: ASENAPINE
     Dosage: 20 MG
     Route: 060
     Dates: start: 20130809, end: 20140101
  4. NITRAZEPAM [Concomitant]
     Active Substance: NITRAZEPAM

REACTIONS (1)
  - Mucocutaneous ulceration [Recovering/Resolving]

NARRATIVE: CASE EVENT DATE: 20140101
